FAERS Safety Report 5628089-2 (Version None)
Quarter: 2008Q1

REPORT INFORMATION
  Report Type: 
  Country: None (occurrence: None)
  Receive Date: 20080215
  Receipt Date: 20070410
  Transmission Date: 20080703
  Serious: Yes (Other)
  Sender: FDA-Public Use
  Company Number: US-ASTRAZENECA-2007UW02126

PATIENT
  Sex: Female
  Weight: 103.6 kg

DRUGS (6)
  1. SEROQUEL [Suspect]
     Indication: SCHIZOPHRENIA
     Route: 048
     Dates: start: 19990701
  2. SEROQUEL [Suspect]
     Indication: PARANOIA
     Route: 048
     Dates: start: 19990701
  3. HALDOL [Concomitant]
     Dates: start: 20000101
  4. RISPERDAL [Concomitant]
  5. PROLIXIN [Concomitant]
     Dosage: 10-20 MG
     Dates: start: 19980101
  6. TOPAMAX [Concomitant]

REACTIONS (12)
  - BENIGN INTRACRANIAL HYPERTENSION [None]
  - BLOOD CHOLESTEROL INCREASED [None]
  - BREAST MASS [None]
  - CYST [None]
  - EPISTAXIS [None]
  - HYPOAESTHESIA [None]
  - OSTEOARTHRITIS [None]
  - PAIN IN EXTREMITY [None]
  - RETINOPATHY [None]
  - TACHYCARDIA [None]
  - TYPE 2 DIABETES MELLITUS [None]
  - WEIGHT INCREASED [None]
